FAERS Safety Report 24171769 (Version 1)
Quarter: 2024Q3

REPORT INFORMATION
  Report Type: Spontaneous
  Country: US (occurrence: None)
  Receive Date: 20240803
  Receipt Date: 20240803
  Transmission Date: 20241017
  Serious: No
  Sender: Public
  Company Number: None

PATIENT
  Age: 45 Year
  Sex: Female

DRUGS (1)
  1. VICKS NYQUIL [Suspect]
     Active Substance: ACETAMINOPHEN\DEXTROMETHORPHAN HYDROBROMIDE\DOXYLAMINE SUCCINATE
     Indication: Illness
     Dosage: OTHER STRENGTH : DIDN^T USE;?

REACTIONS (2)
  - Product storage error [None]
  - Manufacturing product shipping issue [None]

NARRATIVE: CASE EVENT DATE: 20140802
